FAERS Safety Report 4830826-1 (Version None)
Quarter: 2005Q4

REPORT INFORMATION
  Report Type: 
  Country: None (occurrence: None)
  Receive Date: 20051117
  Receipt Date: 20051108
  Transmission Date: 20060501
  Serious: Yes (Hospitalization)
  Sender: FDA-Public Use
  Company Number: JP-MERCK-0511USA01937

PATIENT
  Age: 78 Year
  Sex: Female

DRUGS (5)
  1. FOSAMAX [Suspect]
     Route: 048
  2. NORVASC [Concomitant]
     Route: 048
  3. MEVALOTIN [Concomitant]
     Route: 048
  4. KERLONE [Concomitant]
     Route: 048
  5. YAKUBAN [Concomitant]
     Route: 061

REACTIONS (3)
  - CONSTIPATION [None]
  - GASTROINTESTINAL INFLAMMATION [None]
  - SMALL INTESTINAL PERFORATION [None]
